FAERS Safety Report 9335683 (Version 1)
Quarter: 2013Q2

REPORT INFORMATION
  Report Type: Spontaneous
  Country: US (occurrence: US)
  Receive Date: 20130605
  Receipt Date: 20130605
  Transmission Date: 20140414
  Serious: Yes (Hospitalization)
  Sender: FDA-Public Use
  Company Number: PHEH2013US011961

PATIENT
  Age: 45 Year
  Sex: Male
  Weight: 111 kg

DRUGS (4)
  1. GILENYA [Suspect]
     Indication: MULTIPLE SCLEROSIS
     Dosage: 0.5 MG, QD
     Route: 048
     Dates: start: 20130508
  2. ZANAFLEX [Concomitant]
     Indication: MUSCLE SPASMS
     Dosage: 4 MG, PRN
     Route: 048
  3. VIT D [Concomitant]
     Indication: VITAMIN D DEFICIENCY
     Route: 048
  4. VALACICLOVIR [Concomitant]
     Indication: HERPES VIRUS INFECTION
     Dosage: 500 MG, QD
     Route: 048

REACTIONS (3)
  - Electrocardiogram repolarisation abnormality [Unknown]
  - Extrasystoles [Unknown]
  - Sinus bradycardia [Recovered/Resolved]
